FAERS Safety Report 14222175 (Version 3)
Quarter: 2017Q4

REPORT INFORMATION
  Report Type: Report from Study
  Country: None (occurrence: GB)
  Receive Date: 20171124
  Receipt Date: 20171222
  Transmission Date: 20180321
  Serious: Yes (Hospitalization)
  Sender: FDA-Public Use
  Company Number: GB-CLOVIS-2017-0338-0152

PATIENT
  Age: 60 Year
  Sex: Female
  Weight: 39.9 kg

DRUGS (2)
  1. CO-338 [Suspect]
     Active Substance: RUCAPARIB
     Indication: OVARIAN CANCER
     Route: 048
  2. CO-338 [Suspect]
     Active Substance: RUCAPARIB
     Route: 048
     Dates: end: 20171107

REACTIONS (2)
  - Hyponatraemia [Recovered/Resolved]
  - Acute kidney injury [Recovering/Resolving]

NARRATIVE: CASE EVENT DATE: 20171114
